FAERS Safety Report 4441305-8 (Version None)
Quarter: 2004Q3

REPORT INFORMATION
  Report Type: 
  Country: None (occurrence: None)
  Receive Date: 20040728
  Receipt Date: 20040502
  Transmission Date: 20050211
  Serious: No
  Sender: FDA-Public Use
  Company Number: USA040566494

PATIENT
  Age: 15 Year
  Sex: Female

DRUGS (2)
  1. STRATTERA [Suspect]
     Indication: ATTENTION DEFICIT/HYPERACTIVITY DISORDER
     Dosage: 10 MG DAY
     Dates: start: 20030105
  2. ZOLOFT [Concomitant]

REACTIONS (3)
  - AGGRESSION [None]
  - BIPOLAR I DISORDER [None]
  - IRRITABILITY [None]
